FAERS Safety Report 17251587 (Version 1)
Quarter: 2020Q1

REPORT INFORMATION
  Report Type: Spontaneous
  Country: CN (occurrence: CN)
  Receive Date: 20200109
  Receipt Date: 20200109
  Transmission Date: 20200409
  Serious: Yes (Life-Threatening, Hospitalization, Other)
  Sender: FDA-Public Use
  Company Number: CN-PFIZER INC-2020007379

PATIENT
  Age: 62 Year
  Sex: Female
  Weight: 33 kg

DRUGS (2)
  1. TAZOCIN [Suspect]
     Active Substance: PIPERACILLIN SODIUM\TAZOBACTAM SODIUM
     Indication: BRONCHIECTASIS
     Dosage: 4.5 G, 1X/DAY
     Route: 041
     Dates: start: 20191229, end: 20191229
  2. TAZOCIN [Suspect]
     Active Substance: PIPERACILLIN SODIUM\TAZOBACTAM SODIUM
     Indication: INFECTION

REACTIONS (7)
  - Cyanosis [Recovering/Resolving]
  - Off label use [Unknown]
  - Hypersensitivity [Recovering/Resolving]
  - Hyperhidrosis [Recovering/Resolving]
  - Pruritus [Recovering/Resolving]
  - Left ventricular failure [Recovering/Resolving]
  - Dyspnoea [Recovering/Resolving]

NARRATIVE: CASE EVENT DATE: 20191229
